FAERS Safety Report 8292469-X (Version None)
Quarter: 2012Q2

REPORT INFORMATION
  Report Type: 
  Country: None (occurrence: None)
  Receive Date: 20120417
  Receipt Date: 20110525
  Transmission Date: 20120825
  Serious: No
  Sender: FDA-Public Use
  Company Number: US-ASTRAZENECA-2011SE32609

PATIENT
  Sex: Female

DRUGS (6)
  1. CRESTOR [Suspect]
     Indication: HYPERCHOLESTEROLAEMIA
     Route: 048
     Dates: end: 20110101
  2. CRESTOR [Suspect]
     Route: 048
     Dates: start: 20110101
  3. VITAMIN D [Concomitant]
  4. NEXIUM [Suspect]
     Indication: DYSPEPSIA
     Route: 048
     Dates: start: 20090101
  5. VITAMIN D [Concomitant]
  6. NEXIUM [Suspect]
     Route: 048
     Dates: start: 20090101

REACTIONS (6)
  - DIABETES MELLITUS [None]
  - CONSTIPATION [None]
  - PAIN IN EXTREMITY [None]
  - VITAMIN D DECREASED [None]
  - BLOOD TRIGLYCERIDES INCREASED [None]
  - JOINT CREPITATION [None]
